FAERS Safety Report 13540838 (Version 2)
Quarter: 2017Q2

REPORT INFORMATION
  Report Type: Spontaneous
  Country: CA (occurrence: CA)
  Receive Date: 20170512
  Receipt Date: 20170619
  Transmission Date: 20170830
  Serious: Yes (Other)
  Sender: FDA-Public Use
  Company Number: CA-LPDUSPRD-20170588

PATIENT
  Age: 36 Year
  Sex: Female

DRUGS (4)
  1. VENOFER [Suspect]
     Active Substance: IRON SUCROSE
     Dosage: 10.0 MG (AS REPORTED)
     Route: 042
  2. PALAFER [Concomitant]
     Active Substance: FERROUS FUMARATE
     Dosage: NOT PROVIDED
     Route: 065
  3. PREVACID [Concomitant]
     Active Substance: LANSOPRAZOLE
     Dosage: NOT PROVIDED
     Route: 065
  4. PROZAC [Concomitant]
     Active Substance: FLUOXETINE HYDROCHLORIDE
     Dosage: NOT PROVIDED
     Route: 065

REACTIONS (5)
  - Headache [Unknown]
  - Faeces discoloured [Unknown]
  - Fatigue [Unknown]
  - Melaena [Unknown]
  - Diarrhoea [Unknown]
